FAERS Safety Report 4917990-0 (Version None)
Quarter: 2006Q1

REPORT INFORMATION
  Report Type: 
  Country: None (occurrence: None)
  Receive Date: 20060221
  Receipt Date: 20051031
  Transmission Date: 20060701
  Serious: Yes (Hospitalization, Disabling, Other)
  Sender: FDA-Public Use
  Company Number: US-MERCK-0511USA00133

PATIENT
  Age: 57 Year
  Sex: Male
  Weight: 86 kg

DRUGS (9)
  1. VIOXX [Suspect]
     Indication: BACK PAIN
     Route: 048
     Dates: start: 19990101, end: 20040901
  2. VIOXX [Suspect]
     Indication: MONARTHRITIS
     Route: 048
     Dates: start: 19990101, end: 20040901
  3. LOTREL [Concomitant]
     Route: 065
     Dates: start: 20000709, end: 20040308
  4. HYDRODIURIL [Concomitant]
     Route: 048
     Dates: start: 20010110
  5. EFFEXOR [Concomitant]
     Route: 065
  6. DARVOCET-N 50 [Concomitant]
     Route: 065
  7. MOBIC [Concomitant]
     Route: 065
  8. GINKGO [Concomitant]
     Route: 065
     Dates: start: 20000601
  9. CELEBREX [Concomitant]
     Route: 065
     Dates: start: 20020202

REACTIONS (7)
  - BACK DISORDER [None]
  - BACK PAIN [None]
  - BLOOD CHOLESTEROL INCREASED [None]
  - GASTROOESOPHAGEAL REFLUX DISEASE [None]
  - HYPERTENSION [None]
  - MONARTHRITIS [None]
  - MYOCARDIAL INFARCTION [None]
